FAERS Safety Report 8453650-X (Version None)
Quarter: 2012Q2

REPORT INFORMATION
  Report Type: 
  Country: None (occurrence: None)
  Receive Date: 20120620
  Receipt Date: 20120613
  Transmission Date: 20120825
  Serious: Yes (Other)
  Sender: FDA-Public Use
  Company Number: US-TEVA-331416USA

PATIENT
  Sex: Female
  Weight: 66.738 kg

DRUGS (4)
  1. NUVIGIL [Suspect]
     Indication: DEPRESSION
     Dosage: 150 MILLIGRAM;
     Route: 048
     Dates: start: 20110101, end: 20120401
  2. QUETIAPINE [Concomitant]
     Indication: DEPRESSION
     Route: 048
  3. ARIPIPRAZOLE [Concomitant]
     Indication: DEPRESSION
     Route: 048
     Dates: end: 20120401
  4. NUVIGIL [Suspect]
     Indication: SLEEP DISORDER

REACTIONS (1)
  - ABORTION SPONTANEOUS [None]
